FAERS Safety Report 8215275-0 (Version None)
Quarter: 2012Q1

REPORT INFORMATION
  Report Type: 
  Country: None (occurrence: None)
  Receive Date: 20120316
  Receipt Date: 20120308
  Transmission Date: 20120608
  Serious: Yes (Death, Life-Threatening, Hospitalization, Other)
  Sender: FDA-Public Use
  Company Number: MX-SANOFI-AVENTIS-2012SA016012

PATIENT
  Age: 83 Year
  Sex: Female

DRUGS (4)
  1. LANTUS [Suspect]
     Indication: TYPE 2 DIABETES MELLITUS
     Route: 058
     Dates: start: 20100101, end: 20110912
  2. ANTIHYPERTENSIVES [Concomitant]
     Dates: end: 20110912
  3. ANTIBIOTICS [Concomitant]
     Dates: start: 20110901, end: 20110912
  4. ANTIARRHYTHMICS, CLASS I AND III [Concomitant]
     Dates: end: 20110912

REACTIONS (2)
  - PNEUMONIA ASPIRATION [None]
  - MYOCARDIAL INFARCTION [None]
